FAERS Safety Report 5921794-X (Version None)
Quarter: 2008Q4

REPORT INFORMATION
  Report Type: 
  Country: None (occurrence: None)
  Receive Date: 20081016
  Receipt Date: 20081016
  Transmission Date: 20090506
  Serious: Yes (Hospitalization)
  Sender: FDA-Public Use
  Company Number: None

PATIENT
  Sex: Female
  Weight: 150 kg

DRUGS (2)
  1. ERBITUX [Suspect]
     Dosage: 500 MG
  2. CISPLATIN [Suspect]
     Dosage: 70 MG

REACTIONS (16)
  - ALANINE AMINOTRANSFERASE INCREASED [None]
  - ASPARTATE AMINOTRANSFERASE INCREASED [None]
  - BLISTER [None]
  - BLOOD CHLORIDE DECREASED [None]
  - BLOOD GLUCOSE INCREASED [None]
  - BLOOD POTASSIUM DECREASED [None]
  - HAEMATOCRIT DECREASED [None]
  - HAEMOGLOBIN DECREASED [None]
  - INFLAMMATION [None]
  - NAUSEA [None]
  - PAIN [None]
  - RASH PUSTULAR [None]
  - SKIN EXFOLIATION [None]
  - SUICIDAL IDEATION [None]
  - VOMITING [None]
  - WOUND [None]
